FAERS Safety Report 9005909 (Version 1)
Quarter: 2013Q1

REPORT INFORMATION
  Report Type: Report from Study
  Country: US (occurrence: US)
  Receive Date: 20130109
  Receipt Date: 20130109
  Transmission Date: 20140127
  Serious: Yes (Hospitalization, Other)
  Sender: FDA-Public Use
  Company Number: US-ABBOTT-13P-163-1030531-00

PATIENT
  Age: 83 Year
  Sex: Female

DRUGS (12)
  1. HUMIRA PEN [Suspect]
     Indication: RHEUMATOID ARTHRITIS
     Dates: start: 2008, end: 201204
  2. HUMIRA PEN [Suspect]
     Dosage: TOOK ON 17 NOV 2012, 28 NOV 2012, 05 DEC 2012, 15 DEC 2012, 23 DEC 2012 AND 31 DEC 2012
  3. CLINDAMYCIN [Suspect]
     Indication: POSTOPERATIVE WOUND INFECTION
     Dates: start: 201206, end: 201206
  4. LEVOFLOXACIN [Suspect]
     Indication: POSTOPERATIVE WOUND INFECTION
     Dates: start: 201206, end: 201206
  5. AMLODIPINE [Concomitant]
     Indication: HYPERTENSION
  6. FALOXICAM [Concomitant]
     Indication: PRODUCT USED FOR UNKNOWN INDICATION
  7. VITAMIN D NOS [Concomitant]
     Indication: PRODUCT USED FOR UNKNOWN INDICATION
  8. CALCIUM + VITAMIN D [Concomitant]
     Indication: PRODUCT USED FOR UNKNOWN INDICATION
     Dosage: DAILY
  9. FISH OIL [Concomitant]
     Indication: PRODUCT USED FOR UNKNOWN INDICATION
  10. TYLENOL [Concomitant]
     Indication: PRODUCT USED FOR UNKNOWN INDICATION
  11. PREVACID [Concomitant]
     Indication: PRODUCT USED FOR UNKNOWN INDICATION
  12. PREVACID [Concomitant]
     Indication: PRODUCT USED FOR UNKNOWN INDICATION

REACTIONS (17)
  - Emotional distress [Not Recovered/Not Resolved]
  - Fall [Not Recovered/Not Resolved]
  - Wrist fracture [Not Recovered/Not Resolved]
  - Muscular weakness [Not Recovered/Not Resolved]
  - Tremor [Not Recovered/Not Resolved]
  - Postoperative wound infection [Recovered/Resolved]
  - Hypersensitivity [Not Recovered/Not Resolved]
  - Tongue disorder [Not Recovered/Not Resolved]
  - Allergic oedema [Not Recovered/Not Resolved]
  - Dermatitis allergic [Not Recovered/Not Resolved]
  - Pruritus [Not Recovered/Not Resolved]
  - Rash macular [Not Recovered/Not Resolved]
  - Inappropriate schedule of drug administration [Not Recovered/Not Resolved]
  - Abasia [Recovering/Resolving]
  - Muscular weakness [Recovering/Resolving]
  - Tremor [Recovering/Resolving]
  - Abdominal discomfort [Not Recovered/Not Resolved]
